FAERS Safety Report 10249688 (Version 1)
Quarter: 2014Q2

REPORT INFORMATION
  Report Type: Spontaneous
  Country: US (occurrence: None)
  Receive Date: 20140619
  Receipt Date: 20140619
  Transmission Date: 20141212
  Serious: Yes (Hospitalization)
  Sender: FDA-Public Use
  Company Number: None

PATIENT
  Age: 78 Year
  Sex: Female
  Weight: 68.5 kg

DRUGS (20)
  1. RANEXA [Suspect]
     Indication: ANGINA PECTORIS
     Dosage: 1 PILL BID ORAL
     Route: 048
     Dates: start: 20140613, end: 20140615
  2. ENOXAPARIN [Concomitant]
  3. ALPRAZOLAM [Concomitant]
  4. CLONIDINE [Concomitant]
  5. NITROGLYCERIN [Concomitant]
  6. PANTOPRAZOLE [Concomitant]
  7. HYDROCODONE-APAP [Concomitant]
  8. ASPIRIN [Concomitant]
  9. LORAZEPAM [Concomitant]
  10. CITALOPRAM [Concomitant]
  11. CLOPIDOGREL [Concomitant]
  12. FAMOTIDINE [Concomitant]
  13. GLIMEPIRIDE [Concomitant]
  14. ISOSORBIDE MONONITRATE [Concomitant]
  15. SUCRALFATE [Concomitant]
  16. AMLODIPINE [Concomitant]
  17. SIMVASTATIN [Concomitant]
  18. HYDRALAZINE [Concomitant]
  19. CARVEDILOL [Concomitant]
  20. FUROSEMIDE [Concomitant]

REACTIONS (1)
  - Convulsion [None]
